FAERS Safety Report 9338230 (Version 1)
Quarter: 2013Q2

REPORT INFORMATION
  Report Type: Spontaneous
  Country: US (occurrence: None)
  Receive Date: 20130605
  Receipt Date: 20130605
  Transmission Date: 20140414
  Serious: No
  Sender: FDA-Public Use
  Company Number: None

PATIENT
  Age: 76 Year
  Sex: Female
  Weight: 70.31 kg

DRUGS (1)
  1. OXYBUTYNIN [Suspect]
     Indication: POLLAKIURIA
     Route: 048
     Dates: start: 20130501, end: 20130520

REACTIONS (3)
  - Constipation [None]
  - Dry skin [None]
  - Hair texture abnormal [None]
